FAERS Safety Report 8530991-9 (Version None)
Quarter: 2012Q3

REPORT INFORMATION
  Report Type: 
  Country: None (occurrence: None)
  Receive Date: 20120723
  Receipt Date: 20120719
  Transmission Date: 20120928
  Serious: Yes (Hospitalization)
  Sender: FDA-Public Use
  Company Number: JP-EISAI INC-E2020-11090-SPO-JP

PATIENT
  Age: 80 Year
  Sex: Female

DRUGS (7)
  1. ARICEPT [Suspect]
     Indication: DEMENTIA
     Route: 048
     Dates: start: 20120419, end: 20120701
  2. TEGRETOL [Concomitant]
  3. CRESTOR [Suspect]
     Indication: DIABETES MELLITUS
     Dosage: UNKNOWN
     Route: 048
     Dates: end: 20120701
  4. CELEBREX [Concomitant]
  5. MUCOSTA [Concomitant]
     Route: 048
  6. CONIEL [Concomitant]
  7. NIPOLAZIN [Concomitant]

REACTIONS (1)
  - RHABDOMYOLYSIS [None]
